FAERS Safety Report 4447994-6 (Version None)
Quarter: 2004Q3

REPORT INFORMATION
  Report Type: 
  Country: None (occurrence: None)
  Receive Date: 20040913
  Receipt Date: 20040901
  Transmission Date: 20050211
  Serious: Yes (Death, Life-Threatening)
  Sender: FDA-Public Use
  Company Number: JP-MERCK-0409USA00146

PATIENT
  Age: 43 Year
  Sex: Male

DRUGS (21)
  1. FOSAMAX [Suspect]
     Indication: OSTEOPOROSIS
     Route: 048
     Dates: start: 20030324, end: 20030514
  2. ALFAROL [Concomitant]
     Indication: BACK PAIN
     Route: 048
     Dates: start: 20020814, end: 20030514
  3. ALUMINUM HYDROXIDE AND MAGNESIUM TRISILICATE [Concomitant]
     Indication: GASTRITIS
     Route: 048
     Dates: start: 20030312, end: 20030602
  4. MUCOSOLVAN [Concomitant]
     Indication: ASTHMA
     Route: 048
     Dates: start: 20020814, end: 20030514
  5. NORVASC [Concomitant]
     Indication: HYPERTENSION
     Route: 048
     Dates: start: 20020814, end: 20030602
  6. BROTIZOLAM [Concomitant]
     Indication: INSOMNIA
     Route: 048
     Dates: start: 20030311, end: 20030602
  7. CALCIUM LACTATE [Concomitant]
     Indication: BACK PAIN
     Route: 048
     Dates: start: 20020814, end: 20030514
  8. MUCODYNE [Concomitant]
     Indication: GASTRITIS
     Route: 048
     Dates: start: 20020814, end: 20030514
  9. CYSTEINE HYDROCHLORIDE [Concomitant]
     Indication: ASTHMA
     Route: 048
     Dates: start: 20020814, end: 20030514
  10. VOLTAREN [Concomitant]
     Indication: BACK PAIN
     Route: 054
     Dates: start: 20030228, end: 20030514
  11. ERYTHROMYCIN [Concomitant]
     Indication: ASTHMA
     Route: 048
     Dates: start: 20020814, end: 20030514
  12. GASTER [Concomitant]
     Indication: GASTRITIS
     Route: 048
     Dates: start: 20020814, end: 20030514
  13. GLYBURIDE [Concomitant]
     Indication: HYPOKALAEMIA
     Route: 048
     Dates: start: 20020814, end: 20030514
  14. MAGNESIUM OXIDE [Concomitant]
     Indication: GASTRITIS
     Route: 048
     Dates: start: 20020814, end: 20030514
  15. PENTAZOCINE HYDROCHLORIDE [Suspect]
     Indication: BACK PAIN
     Route: 048
     Dates: start: 20030326, end: 20030514
  16. SLOW-K [Concomitant]
     Indication: HYPOKALAEMIA
     Route: 048
     Dates: start: 20020814, end: 20030514
  17. ONON [Concomitant]
     Indication: ASTHMA
     Route: 048
     Dates: start: 20020814, end: 20030514
  18. PREDNISOLONE [Concomitant]
     Indication: ASTHMA
     Route: 048
     Dates: start: 20020814, end: 20030514
  19. SELBEX [Concomitant]
     Indication: GASTRITIS
     Route: 048
     Dates: start: 20020814, end: 20030514
  20. THEO-DUR [Suspect]
     Indication: ASTHMA
     Route: 048
     Dates: start: 20020814, end: 20030514
  21. HOKUNALIN [Concomitant]
     Indication: ASTHMA
     Route: 061
     Dates: start: 20020814, end: 20030602

REACTIONS (2)
  - GASTRIC ULCER HAEMORRHAGE [None]
  - PNEUMONIA [None]
